FAERS Safety Report 6204297-7 (Version None)
Quarter: 2009Q2

REPORT INFORMATION
  Report Type: 
  Country: None (occurrence: None)
  Receive Date: 20090518
  Receipt Date: 20090127
  Transmission Date: 20091009
  Serious: No
  Sender: FDA-Public Use
  Company Number: WAES 0901USA00347

PATIENT
  Age: 62 Year
  Sex: Female
  Weight: 88.905 kg

DRUGS (4)
  1. JANUVIA [Suspect]
     Indication: TYPE 2 DIABETES MELLITUS
     Dosage: 100 MG/AM/PO
     Route: 048
     Dates: start: 20070622, end: 20090108
  2. ACTOS [Concomitant]
  3. RYNATAN [Concomitant]
  4. ASPIRIN [Concomitant]

REACTIONS (8)
  - ARTHRALGIA [None]
  - BLOOD GLUCOSE INCREASED [None]
  - GOUT [None]
  - HYPERLIPIDAEMIA [None]
  - JOINT SWELLING [None]
  - NECK INJURY [None]
  - OSTEOARTHRITIS [None]
  - SENSORY DISTURBANCE [None]
